FAERS Safety Report 12978195 (Version 2)
Quarter: 2017Q3

REPORT INFORMATION
  Report Type: Report from Study
  Country: JP (occurrence: JP)
  Receive Date: 20161128
  Receipt Date: 20170808
  Transmission Date: 20171127
  Serious: Yes (Hospitalization)
  Sender: FDA-Public Use
  Company Number: JP-TAIHO ONCOLOGY INC-JPTT150551

PATIENT
  Age: 64 Year
  Sex: Female
  Weight: 44 kg

DRUGS (2)
  1. LONSURF [Suspect]
     Active Substance: TIPIRACIL HYDROCHLORIDE\TRIFLURIDINE
     Indication: COLON CANCER METASTATIC
     Dosage: 20 MG X 2/DAY, ON DAYS 1-5 AND 8-12 OF EACH 28-DAY CYCLE, CYCLE 1
     Route: 048
     Dates: start: 20150206, end: 20150218
  2. LONSURF [Suspect]
     Active Substance: TIPIRACIL HYDROCHLORIDE\TRIFLURIDINE
     Indication: COLON CANCER METASTATIC
     Dosage: 20 MG X 2/DAY, ON DAYS 1-5 AND 8-12 OF EACH 28-DAY CYCLE, CYCLE 2
     Route: 048
     Dates: start: 20150313, end: 20150325

REACTIONS (5)
  - Generalised oedema [Recovered/Resolved]
  - Anaemia [Recovered/Resolved]
  - Cholangitis [Recovering/Resolving]
  - Vomiting [Recovering/Resolving]
  - Hyperbilirubinaemia [Recovered/Resolved]

NARRATIVE: CASE EVENT DATE: 20150213
